FAERS Safety Report 21201430 (Version 1)
Quarter: 2022Q3

REPORT INFORMATION
  Report Type: Report from Study
  Country: US (occurrence: US)
  Receive Date: 20220811
  Receipt Date: 20220811
  Transmission Date: 20221026
  Serious: No
  Sender: FDA-Public Use
  Company Number: US-AURINIA PHARMACEUTICALS INC.-AUR-001261

PATIENT
  Age: 45 Year
  Sex: Female

DRUGS (3)
  1. LUPKYNIS [Suspect]
     Active Substance: VOCLOSPORIN
     Indication: Product used for unknown indication
     Dosage: 15.8 MILLIGRAM, BID
     Route: 048
     Dates: start: 20220318
  2. LUPKYNIS [Suspect]
     Active Substance: VOCLOSPORIN
     Dosage: 15.8 MILLIGRAM, BID
     Route: 048
     Dates: start: 20220324
  3. LUPKYNIS [Suspect]
     Active Substance: VOCLOSPORIN
     Dosage: UNK
     Route: 048

REACTIONS (1)
  - Alopecia [Unknown]

NARRATIVE: CASE EVENT DATE: 20220318
